FAERS Safety Report 8233646 (Version 5)
Quarter: 2013Q1

REPORT INFORMATION
  Report Type: Spontaneous
  Country: US (occurrence: US)
  Receive Date: 20111107
  Receipt Date: 20130308
  Transmission Date: 20140127
  Serious: Yes (Life-Threatening, Other)
  Sender: FDA-Public Use
  Company Number: US-ASTRAZENECA-2011SE65447

PATIENT
  Age: 47 Year
  Sex: Female

DRUGS (2)
  1. NEXIUM [Suspect]
     Route: 048
  2. RANITIDINE [Concomitant]

REACTIONS (6)
  - Renal cancer [Unknown]
  - Bladder cancer [Unknown]
  - Neoplasm malignant [Unknown]
  - Laryngeal cancer [Unknown]
  - Malaise [Unknown]
  - Drug dose omission [Unknown]
